FAERS Safety Report 12425362 (Version 1)
Quarter: 2016Q2

REPORT INFORMATION
  Report Type: Spontaneous
  Country: US (occurrence: US)
  Receive Date: 20160601
  Receipt Date: 20160601
  Transmission Date: 20160815
  Serious: No
  Sender: FDA-Public Use
  Company Number: US-ZYDUS-009245

PATIENT
  Age: 52 Year
  Sex: Female

DRUGS (1)
  1. MORPHINE [Suspect]
     Active Substance: MORPHINE
     Indication: SCOLIOSIS
     Route: 048
     Dates: start: 201509

REACTIONS (5)
  - Tremor [Unknown]
  - Migraine [Unknown]
  - Drug ineffective [Unknown]
  - Nervousness [Unknown]
  - Vomiting [Unknown]

NARRATIVE: CASE EVENT DATE: 201509
